FAERS Safety Report 19741080 (Version 1)
Quarter: 2021Q3

REPORT INFORMATION
  Report Type: Spontaneous
  Country: US (occurrence: US)
  Receive Date: 20210825
  Receipt Date: 20210825
  Transmission Date: 20211014
  Serious: No
  Sender: FDA-Public Use
  Company Number: US-DRREDDYS-SPO/USA/21/0139372

PATIENT
  Age: 27 Year
  Sex: Male

DRUGS (1)
  1. ZENATANE [Suspect]
     Active Substance: ISOTRETINOIN
     Indication: PRODUCT USED FOR UNKNOWN INDICATION
     Dosage: RMA ISSUE DATE: 08 MAY 2014 9:27:25 AM, 03 MAY 2021 1:36:55 PM, 26 MAY 2021 11:46:15 AM, 18 JUNE 202

REACTIONS (1)
  - Adverse drug reaction [Recovered/Resolved]
